FAERS Safety Report 10146859 (Version 1)
Quarter: 2014Q2

REPORT INFORMATION
  Report Type: Spontaneous
  Country: GB (occurrence: None)
  Receive Date: 20140429
  Receipt Date: 20140429
  Transmission Date: 20141212
  Serious: Yes (Death)
  Sender: FDA-Public Use
  Company Number: GB-2014-1145

PATIENT
  Age: 38 Year
  Sex: 0

DRUGS (2)
  1. NAVELBINE [Suspect]
     Indication: BREAST CANCER METASTATIC
     Dosage: 40 MG, DAY 1 AND DAY 8, CYCLICAL (1/21)
     Route: 042
     Dates: end: 20050329
  2. CAPECITABINE [Suspect]
     Indication: BREAST CANCER METASTATIC
     Dosage: 2000/1500 MG DURING 14 DAYS
     Dates: end: 20050329

REACTIONS (4)
  - Malignant neoplasm progression [None]
  - Haematotoxicity [None]
  - Gastrointestinal toxicity [None]
  - Breast cancer metastatic [None]
